FAERS Safety Report 21407445 (Version 1)
Quarter: 2022Q4

REPORT INFORMATION
  Report Type: Report from Study
  Country: US (occurrence: US)
  Receive Date: 20221004
  Receipt Date: 20221004
  Transmission Date: 20230113
  Serious: Yes (Other)
  Sender: FDA-Public Use
  Company Number: US-OTSUKA-2022_046863

PATIENT
  Sex: Male

DRUGS (1)
  1. ARIPIPRAZOLE [Suspect]
     Active Substance: ARIPIPRAZOLE
     Indication: Bipolar disorder
     Dosage: 400MG EVERY 30 DAYS
     Route: 030
     Dates: start: 20211004

REACTIONS (3)
  - Drug dependence [Unknown]
  - Impaired work ability [Unknown]
  - Inability to afford medication [Unknown]
